FAERS Safety Report 5999728-1 (Version None)
Quarter: 2008Q4

REPORT INFORMATION
  Report Type: 
  Country: None (occurrence: None)
  Receive Date: 20081215
  Receipt Date: 20081203
  Transmission Date: 20090506
  Serious: Yes (Other)
  Sender: FDA-Public Use
  Company Number: US-ROCHE-601018

PATIENT
  Age: 72 Year
  Sex: Female

DRUGS (7)
  1. VALIUM [Suspect]
     Dosage: 1 PER PRN
     Route: 048
     Dates: start: 19780101
  2. LIPITOR [Concomitant]
  3. ASPIRIN [Concomitant]
  4. SYNTHROID [Concomitant]
  5. LASIX [Concomitant]
     Dosage: GENERIC FOR LASIX
  6. DARVOCET [Concomitant]
     Dosage: DRUG : DARVOCET N 100
  7. AMITRIPTYLINE HCL [Concomitant]

REACTIONS (6)
  - CARDIAC FAILURE [None]
  - CATARACT OPERATION [None]
  - CORONARY ARTERY OCCLUSION [None]
  - HIATUS HERNIA [None]
  - NEUROPATHY PERIPHERAL [None]
  - PULMONARY FIBROSIS [None]
